FAERS Safety Report 13071661 (Version 1)
Quarter: 2016Q4

REPORT INFORMATION
  Report Type: Spontaneous
  Country: FR (occurrence: FR)
  Receive Date: 20161229
  Receipt Date: 20161229
  Transmission Date: 20170207
  Serious: Yes (Hospitalization, Other)
  Sender: FDA-Public Use
  Company Number: FR-PFIZER INC-2016597853

PATIENT
  Age: 88 Year
  Sex: Female

DRUGS (7)
  1. EUPANTOL [Suspect]
     Active Substance: PANTOPRAZOLE SODIUM
     Dosage: UNK
     Route: 048
  2. LERCAN [Suspect]
     Active Substance: LERCANIDIPINE
     Dosage: UNK
     Route: 048
  3. SIMVASTATINE [Suspect]
     Active Substance: SIMVASTATIN
     Dosage: UNK
     Route: 065
  4. BRILIQUE [Suspect]
     Active Substance: TICAGRELOR
     Dosage: 90 MG, UNK
     Route: 048
  5. CORENITEC [Suspect]
     Active Substance: ENALAPRIL\HYDROCHLOROTHIAZIDE
     Dosage: UNK
     Route: 048
     Dates: end: 20161206
  6. METOPROLOL. [Suspect]
     Active Substance: METOPROLOL
     Dosage: UNK
     Route: 048
  7. DAFALGAN [Suspect]
     Active Substance: ACETAMINOPHEN
     Dosage: UNK
     Route: 048

REACTIONS (2)
  - Hyponatraemia [Recovering/Resolving]
  - Hypokalaemia [Recovered/Resolved]

NARRATIVE: CASE EVENT DATE: 20161206
